FAERS Safety Report 19747687 (Version 1)
Quarter: 2021Q3

REPORT INFORMATION
  Report Type: Report from Study
  Country: MX (occurrence: MX)
  Receive Date: 20210826
  Receipt Date: 20210826
  Transmission Date: 20211014
  Serious: Yes (Other)
  Sender: FDA-Public Use
  Company Number: NVSC2021MX192459

PATIENT
  Sex: Female
  Weight: 90 kg

DRUGS (2)
  1. EXFORGE [Suspect]
     Active Substance: AMLODIPINE BESYLATE\VALSARTAN
     Dosage: 1 DF(5/160 MG), QD, 1 YEARS AGO
     Route: 048
  2. EXFORGE [Suspect]
     Active Substance: AMLODIPINE BESYLATE\VALSARTAN
     Indication: HYPERTENSION
     Dosage: 1 DF(10/160MG), QD, 20 YEARS AGO
     Route: 048

REACTIONS (3)
  - Cerebrovascular accident [Unknown]
  - Respiratory failure [Not Recovered/Not Resolved]
  - Bronchitis [Not Recovered/Not Resolved]
